FAERS Safety Report 16844685 (Version 1)
Quarter: 2019Q3

REPORT INFORMATION
  Report Type: Spontaneous
  Country: CN (occurrence: CN)
  Receive Date: 20190924
  Receipt Date: 20190924
  Transmission Date: 20191005
  Serious: Yes (Hospitalization)
  Sender: FDA-Public Use
  Company Number: CN-ALLERGAN-1938580US

PATIENT
  Sex: Male
  Weight: 51 kg

DRUGS (2)
  1. PAROXETINE. [Suspect]
     Active Substance: PAROXETINE
     Indication: SOMATIC SYMPTOM DISORDER
     Dosage: 80 MG, QD
     Route: 048
     Dates: start: 20141201, end: 20190910
  2. ESCITALOPRAM OXALATE - BP [Suspect]
     Active Substance: ESCITALOPRAM OXALATE
     Indication: SOMATIC SYMPTOM DISORDER
     Dosage: OVERDOSE WITH 40MG OF ESCITALOPRAM
     Route: 048
     Dates: start: 20141201, end: 20190910

REACTIONS (3)
  - Overdose [Unknown]
  - Product use in unapproved indication [Unknown]
  - Serotonin syndrome [Recovering/Resolving]

NARRATIVE: CASE EVENT DATE: 20190822
